APPROVED DRUG PRODUCT: NALOXONE HYDROCHLORIDE
Active Ingredient: NALOXONE HYDROCHLORIDE
Strength: 1MG/ML
Dosage Form/Route: INJECTABLE;INJECTION
Application: A071604 | Product #001
Applicant: ABRAXIS PHARMACEUTICAL PRODUCTS
Approved: Dec 16, 1988 | RLD: No | RS: No | Type: DISCN